FAERS Safety Report 17909381 (Version 1)
Quarter: 2020Q2

REPORT INFORMATION
  Report Type: Report from Study
  Country: EG (occurrence: EG)
  Receive Date: 20200617
  Receipt Date: 20200617
  Transmission Date: 20200714
  Serious: Yes (Other)
  Sender: FDA-Public Use
  Company Number: NVSC2020EG167387

PATIENT
  Sex: Male

DRUGS (7)
  1. CONVENTIN [Concomitant]
     Indication: PRODUCT USED FOR UNKNOWN INDICATION
     Dosage: 300 MG, QD (ONE MONTH AND A WEEK AGO (AS OF 13 JUN 2020).
     Route: 065
  2. LIVABION [Concomitant]
     Indication: PRODUCT USED FOR UNKNOWN INDICATION
     Dosage: AMPOULE (ONE MONTH AND A WEEK AGO (AS OF 13 JUN 2020).
     Route: 065
  3. GLIVEC [Suspect]
     Active Substance: IMATINIB MESYLATE
     Indication: CHRONIC MYELOID LEUKAEMIA
     Dosage: 400 MG, QD
     Route: 065
  4. EZACARD [Concomitant]
     Indication: PRODUCT USED FOR UNKNOWN INDICATION
     Dosage: UNK, QD (ONE MONTH AND A WEEK AGO (AS OF 13 JUN 2020).
     Route: 065
  5. TASIGNA [Suspect]
     Active Substance: NILOTINIB
     Indication: CHRONIC MYELOID LEUKAEMIA
     Dosage: STARTED 2 YEARS AGO AND STOPPED 1 YEAR AGO
     Route: 065
  6. THIOTACID [Concomitant]
     Active Substance: .ALPHA.-LIPOIC ACID
     Indication: PRODUCT USED FOR UNKNOWN INDICATION
     Dosage: 600 MG, BID (ONE MONTH AND A WEEK AGO (AS OF 13 JUN 2020).
     Route: 065
  7. SPRYCEL [Suspect]
     Active Substance: DASATINIB
     Indication: PRODUCT USED FOR UNKNOWN INDICATION
     Dosage: ONE YEAR AGO AFTER TASIGNA
     Route: 065

REACTIONS (6)
  - Hypoaesthesia [Unknown]
  - Drug resistance [Recovered/Resolved]
  - Vomiting [Recovering/Resolving]
  - Spinal cord neoplasm [Unknown]
  - Back pain [Unknown]
  - Rash [Recovering/Resolving]

NARRATIVE: CASE EVENT DATE: 2018
